FAERS Safety Report 10218833 (Version 1)
Quarter: 2014Q2

REPORT INFORMATION
  Report Type: Spontaneous
  Country: GR (occurrence: None)
  Receive Date: 20140603
  Receipt Date: 20140603
  Transmission Date: 20141212
  Serious: Yes (Hospitalization)
  Sender: FDA-Public Use
  Company Number: 7295031

PATIENT
  Age: 38 Year
  Sex: Male

DRUGS (1)
  1. THYROXINE [Suspect]
     Indication: BLOOD THYROID STIMULATING HORMONE INCREASED

REACTIONS (7)
  - Pituitary tumour [None]
  - Osteopenia [None]
  - Blood alkaline phosphatase increased [None]
  - Pericardial effusion [None]
  - Pericarditis [None]
  - Adenoma benign [None]
  - Hyperthyroidism [None]
